FAERS Safety Report 20669244 (Version 1)
Quarter: 2022Q2

REPORT INFORMATION
  Report Type: Spontaneous
  Country: US (occurrence: None)
  Receive Date: 20220403
  Receipt Date: 20220403
  Transmission Date: 20220720
  Serious: Yes (Other)
  Sender: FDA-Public Use
  Company Number: None

PATIENT
  Age: 43 Year
  Sex: Female
  Weight: 61.65 kg

DRUGS (3)
  1. CBD PAIN RELIEF CREAM [Suspect]
     Active Substance: LIDOCAINE HYDROCHLORIDE\MENTHOL
     Indication: Pain
     Dosage: OTHER QUANTITY : 1 PEA-SIZED AMOUNT;?FREQUENCY : AS NEEDED;?
     Route: 061
     Dates: start: 20220302, end: 20220316
  2. CBD PAIN RELIEF CREAM [Suspect]
     Active Substance: LIDOCAINE HYDROCHLORIDE\MENTHOL
     Indication: Arthralgia
  3. CBD PAIN RELIEF CREAM [Suspect]
     Active Substance: LIDOCAINE HYDROCHLORIDE\MENTHOL

REACTIONS (6)
  - Product odour abnormal [None]
  - Product preparation issue [None]
  - Wrong technique in product usage process [None]
  - Rash [None]
  - Rash [None]
  - Application site rash [None]

NARRATIVE: CASE EVENT DATE: 20220316
